FAERS Safety Report 16248008 (Version 2)
Quarter: 2020Q2

REPORT INFORMATION
  Report Type: Spontaneous
  Country: US (occurrence: US)
  Receive Date: 20190428
  Receipt Date: 20200403
  Transmission Date: 20200713
  Serious: Yes (Death, Other)
  Sender: FDA-Public Use
  Company Number: US-JNJFOC-20190423448

PATIENT
  Age: 51 Year
  Sex: Female

DRUGS (1)
  1. XARELTO [Suspect]
     Active Substance: RIVAROXABAN
     Indication: ANTICOAGULANT THERAPY
     Route: 048

REACTIONS (5)
  - Rectal haemorrhage [Unknown]
  - Atrial fibrillation [Fatal]
  - Hypertension [Fatal]
  - Cardiac failure congestive [Fatal]
  - Renal failure [Fatal]

NARRATIVE: CASE EVENT DATE: 20141101
